FAERS Safety Report 6293970-0 (Version None)
Quarter: 2009Q3

REPORT INFORMATION
  Report Type: 
  Country: None (occurrence: None)
  Receive Date: 20090803
  Receipt Date: 20080609
  Transmission Date: 20100115
  Serious: No
  Sender: FDA-Public Use
  Company Number: A0732200A

PATIENT
  Age: 27 Year
  Sex: Male

DRUGS (1)
  1. NICORETTE (MINT) [Suspect]
     Dates: start: 20080529, end: 20080608

REACTIONS (5)
  - ABDOMINAL PAIN UPPER [None]
  - DIARRHOEA [None]
  - DIZZINESS [None]
  - EXPIRED DRUG ADMINISTERED [None]
  - NAUSEA [None]
